FAERS Safety Report 16413351 (Version 4)
Quarter: 2022Q3

REPORT INFORMATION
  Report Type: Spontaneous
  Country: US (occurrence: None)
  Receive Date: 20190611
  Receipt Date: 20220802
  Transmission Date: 20221027
  Serious: Yes (Hospitalization, Other)
  Sender: FDA-Public Use
  Company Number: 2018SF48237

PATIENT
  Age: 23773 Day
  Sex: Male
  Weight: 82.6 kg

DRUGS (56)
  1. PRILOSEC [Suspect]
     Active Substance: OMEPRAZOLE MAGNESIUM
     Indication: Gastrooesophageal reflux disease
     Route: 048
     Dates: start: 19980101, end: 20140101
  2. PRILOSEC [Suspect]
     Active Substance: OMEPRAZOLE MAGNESIUM
     Indication: Gastrooesophageal reflux disease
     Dosage: GENERIC
     Route: 065
     Dates: start: 20030623, end: 20190611
  3. PRILOSEC [Suspect]
     Active Substance: OMEPRAZOLE MAGNESIUM
     Indication: Gastrooesophageal reflux disease
     Dosage: GENERIC
     Route: 065
     Dates: start: 20030620, end: 20190611
  4. PRILOSEC OTC [Suspect]
     Active Substance: OMEPRAZOLE MAGNESIUM
     Route: 048
     Dates: start: 20030620, end: 20140101
  5. AMITRIPTYLINE [Concomitant]
     Active Substance: AMITRIPTYLINE
  6. BISACODYL [Concomitant]
     Active Substance: BISACODYL
  7. LORAZEPAM [Concomitant]
     Active Substance: LORAZEPAM
  8. RANITIDINE [Concomitant]
     Active Substance: RANITIDINE
  9. CYCLOBENZAPRINE [Concomitant]
     Active Substance: CYCLOBENZAPRINE
  10. PANTOPRAZOLE [Concomitant]
     Active Substance: PANTOPRAZOLE
  11. OXYCODONE [Concomitant]
     Active Substance: OXYCODONE
  12. GABAPENTIN [Concomitant]
     Active Substance: GABAPENTIN
  13. NEXIUM [Concomitant]
     Active Substance: ESOMEPRAZOLE MAGNESIUM
  14. AMLODIPINE BESYLATE [Concomitant]
     Active Substance: AMLODIPINE BESYLATE
     Indication: Hypertension
     Route: 065
  15. LISINOPRIL [Concomitant]
     Active Substance: LISINOPRIL
     Indication: Hypertension
     Route: 065
  16. TRAMADOL [Concomitant]
     Active Substance: TRAMADOL
     Indication: Pain
     Route: 065
  17. ACETAMINOPHEN [Concomitant]
     Active Substance: ACETAMINOPHEN
     Indication: Pain
     Route: 065
  18. HYDROMORPHONE [Concomitant]
     Active Substance: HYDROMORPHONE
  19. PERCOCET [Concomitant]
     Active Substance: ACETAMINOPHEN\OXYCODONE HYDROCHLORIDE
  20. SUMATRIPTAN [Concomitant]
     Active Substance: SUMATRIPTAN
  21. ACETAMINOPHEN\PROPOXYPHENE [Concomitant]
     Active Substance: ACETAMINOPHEN\PROPOXYPHENE
  22. NOVOLOG [Concomitant]
     Active Substance: INSULIN ASPART
  23. HYDROCHLOROTHIAZIDE\LISINOPRIL [Concomitant]
     Active Substance: HYDROCHLOROTHIAZIDE\LISINOPRIL
  24. CLARITHROMYCIN [Concomitant]
     Active Substance: CLARITHROMYCIN
  25. VITAMIN D3 [Concomitant]
     Active Substance: CHOLECALCIFEROL
  26. LEVAQUIN [Concomitant]
     Active Substance: LEVOFLOXACIN
  27. CIALIS [Concomitant]
     Active Substance: TADALAFIL
  28. VIGAMOX [Concomitant]
     Active Substance: MOXIFLOXACIN HYDROCHLORIDE
  29. DICYCLOMINE [Concomitant]
     Active Substance: DICYCLOMINE HYDROCHLORIDE
  30. NICOTINE [Concomitant]
     Active Substance: NICOTINE
  31. LOVENOX [Concomitant]
     Active Substance: ENOXAPARIN SODIUM
  32. ALEVE [Concomitant]
     Active Substance: NAPROXEN SODIUM
  33. DEXTROSE [Concomitant]
     Active Substance: DEXTROSE
  34. TAGAMET [Concomitant]
     Active Substance: CIMETIDINE
  35. FLOMAX [Concomitant]
     Active Substance: TAMSULOSIN HYDROCHLORIDE
  36. FOLIC ACID [Concomitant]
     Active Substance: FOLIC ACID
  37. VITAMINS [Concomitant]
     Active Substance: VITAMINS
  38. FENTANYL [Concomitant]
     Active Substance: FENTANYL
  39. ZOSYN [Concomitant]
     Active Substance: PIPERACILLIN SODIUM\TAZOBACTAM SODIUM
  40. VANCOMYCIN [Concomitant]
     Active Substance: VANCOMYCIN
  41. QUERCETIN/ACETYLCYSTEINE/THIOCTIC ACID/MECOBALAMIN/SELENOMETHIONINE/(6 [Concomitant]
  42. SODIUM CHLORIDE [Concomitant]
     Active Substance: SODIUM CHLORIDE
  43. MOTRIN [Concomitant]
     Active Substance: IBUPROFEN
  44. VOLTAREN [Concomitant]
     Active Substance: DICLOFENAC SODIUM
  45. TRIAMCINOLONE [Concomitant]
     Active Substance: TRIAMCINOLONE
  46. POLYETHYLENE GLYCOL [Concomitant]
     Active Substance: POLYETHYLENE GLYCOL
  47. CALCITRIOL [Concomitant]
     Active Substance: CALCITRIOL
  48. MAGNESIUM OXIDE [Concomitant]
     Active Substance: MAGNESIUM OXIDE
  49. BROMHEXINE/PARACETAMOL/BROMPHENIRAMINE [Concomitant]
  50. BETAMETHASONE/KETOROLAC [Concomitant]
  51. SULFAMETHOXAZOLE [Concomitant]
     Active Substance: SULFAMETHOXAZOLE
  52. ALBUTEROL\IPRATROPIUM BROMIDE [Concomitant]
     Active Substance: ALBUTEROL\IPRATROPIUM BROMIDE
  53. SENNA [Concomitant]
     Active Substance: SENNA LEAF\SENNOSIDES\SENNOSIDES A AND B
  54. AZITHROMYCIN [Concomitant]
     Active Substance: AZITHROMYCIN
  55. PREDNISONE [Concomitant]
     Active Substance: PREDNISONE
  56. KETAMINE [Concomitant]
     Active Substance: KETAMINE

REACTIONS (9)
  - Chronic kidney disease [Not Recovered/Not Resolved]
  - Acute kidney injury [Not Recovered/Not Resolved]
  - End stage renal disease [Unknown]
  - Renal injury [Unknown]
  - Tubulointerstitial nephritis [Unknown]
  - Nephrogenic anaemia [Unknown]
  - Hyperparathyroidism secondary [Unknown]
  - Renal failure [Unknown]
  - Dyspepsia [Unknown]

NARRATIVE: CASE EVENT DATE: 20141025
